FAERS Safety Report 7058198 (Version 4)
Quarter: 2016Q1

REPORT INFORMATION
  Report Type: Spontaneous
  Country: IE (occurrence: US)
  Receive Date: 20090722
  Receipt Date: 20160304
  Transmission Date: 20160526
  Serious: Yes (Death)
  Sender: FDA-Public Use
  Company Number: US-PFIZER INC-2009242653

PATIENT
  Age: 50 Year
  Sex: Male
  Weight: 60 kg

DRUGS (20)
  1. DILAUDID [Suspect]
     Active Substance: HYDROMORPHONE HYDROCHLORIDE
  2. VICODIN [Suspect]
     Active Substance: ACETAMINOPHEN\HYDROCODONE BITARTRATE
  3. PAXIL [Suspect]
     Active Substance: PAROXETINE HYDROCHLORIDE
     Indication: DEPRESSION
  4. MIDAZOLAM HCL [Suspect]
     Active Substance: MIDAZOLAM HYDROCHLORIDE
     Indication: INSOMNIA
     Dosage: UNK
     Dates: start: 20090622, end: 20090624
  5. VISTARIL [Suspect]
     Active Substance: HYDROXYZINE PAMOATE
     Indication: ANXIOLYTIC THERAPY
     Dosage: UNK
  6. XANAX [Suspect]
     Active Substance: ALPRAZOLAM
  7. MIDAZOLAM HCL [Suspect]
     Active Substance: MIDAZOLAM HYDROCHLORIDE
     Indication: SLEEP DISORDER THERAPY
     Dosage: UNK
     Dates: start: 20090625
  8. PROPOFOL. [Suspect]
     Active Substance: PROPOFOL
     Indication: INSOMNIA
     Dosage: 25 MG, UNK (AT 11:00 O^CLOCK IN THE MORNING)
     Dates: start: 20090625
  9. DEMEROL [Suspect]
     Active Substance: MEPERIDINE HYDROCHLORIDE
     Indication: SLEEP DISORDER THERAPY
     Dosage: 10 MG, UNK (1:30 IN THE MORNING)
     Dates: start: 20090625
  10. ZOLOFT [Suspect]
     Active Substance: SERTRALINE HYDROCHLORIDE
     Indication: DEPRESSION
  11. PROPOFOL. [Suspect]
     Active Substance: PROPOFOL
     Indication: ANAESTHESIA
  12. DIPRIVAN [Suspect]
     Active Substance: PROPOFOL
     Indication: INSOMNIA
     Dosage: 50 MG, 1X/DAY
     Dates: end: 20090621
  13. DIPRIVAN [Suspect]
     Active Substance: PROPOFOL
     Dosage: 25 MG, SINGLE
     Dates: start: 20090622, end: 20090622
  14. DIPRIVAN [Suspect]
     Active Substance: PROPOFOL
     Dosage: 25 MG, SINGLE
     Route: 041
     Dates: start: 20090624, end: 20090624
  15. LORAZEPAM. [Suspect]
     Active Substance: LORAZEPAM
     Indication: INSOMNIA
     Dosage: UNK MG, UNK
     Dates: start: 20090622, end: 20090624
  16. LORAZEPAM. [Suspect]
     Active Substance: LORAZEPAM
     Indication: DEHYDRATION
     Dosage: 2 MG, UNK (AT ABOUT 2:00 O^CLOCK AND AT 5:00 O^CLOCK IN THE MORNINGUNK
     Dates: start: 20090625
  17. VALIUM [Suspect]
     Active Substance: DIAZEPAM
     Indication: INSOMNIA
     Dosage: UNK
     Dates: end: 20090624
  18. LIDOCAINE HCL [Suspect]
     Active Substance: LIDOCAINE HYDROCHLORIDE
     Indication: INSOMNIA
     Dosage: UNK
     Route: 041
     Dates: start: 20090624, end: 20090624
  19. SOMA [Suspect]
     Active Substance: CARISOPRODOL
     Indication: MUSCLE RELAXANT THERAPY
  20. PRILOSEC [Suspect]
     Active Substance: OMEPRAZOLE MAGNESIUM
     Indication: GASTRIC ULCER

REACTIONS (4)
  - Toxicity to various agents [Fatal]
  - Respiratory arrest [Fatal]
  - Administration related reaction [Fatal]
  - Off label use [Fatal]

NARRATIVE: CASE EVENT DATE: 20090625
